FAERS Safety Report 7336728-3 (Version None)
Quarter: 2011Q1

REPORT INFORMATION
  Report Type: 
  Country: None (occurrence: None)
  Receive Date: 20110308
  Receipt Date: 20110224
  Transmission Date: 20110831
  Serious: No
  Sender: FDA-Public Use
  Company Number: US-BIOGENIDEC-2010BI039135

PATIENT
  Sex: Male

DRUGS (3)
  1. TYSABRI [Suspect]
     Indication: MULTIPLE SCLEROSIS
     Route: 042
     Dates: start: 20100625, end: 20101227
  2. AVONEX [Concomitant]
     Indication: MULTIPLE SCLEROSIS
     Route: 030
     Dates: start: 20090415
  3. AVONEX [Concomitant]
     Route: 030
     Dates: start: 20100601

REACTIONS (4)
  - GAIT DISTURBANCE [None]
  - BALANCE DISORDER [None]
  - DRUG INEFFECTIVE [None]
  - GENERAL SYMPTOM [None]
